FAERS Safety Report 9443583 (Version 4)
Quarter: 2013Q4

REPORT INFORMATION
  Report Type: Report from Study
  Country: GB (occurrence: GB)
  Receive Date: 20130806
  Receipt Date: 20131118
  Transmission Date: 20140711
  Serious: Yes (Death, Hospitalization)
  Sender: FDA-Public Use
  Company Number: GB-ALEXION PHARMACEUTICALS INC.-A201301769

PATIENT
  Age: 24 Year
  Sex: 0

DRUGS (11)
  1. ECULIZUMAB [Suspect]
     Indication: HAEMOLYTIC URAEMIC SYNDROME
     Dosage: 900 MG, QD
     Route: 042
     Dates: start: 20130620, end: 20130620
  2. ECULIZUMAB [Suspect]
     Dosage: 900 MG, QD
     Route: 042
     Dates: start: 20130621, end: 20130621
  3. ECULIZUMAB [Suspect]
     Dosage: 900 MG, QD
     Route: 042
     Dates: start: 20130628, end: 20130628
  4. IRBESARTAN [Concomitant]
     Indication: HYPERTENSION
     Dosage: 150 MG, BID
  5. NIFEDIPINE LA [Concomitant]
     Indication: HYPERTENSION
     Dosage: 20 MG, QD
  6. ALFACALCIDOL [Concomitant]
     Indication: PROPHYLAXIS
     Dosage: UNK
     Route: 048
     Dates: start: 1992
  7. FOLIC ACID [Concomitant]
     Indication: ANAEMIA
     Dosage: UNK
     Route: 048
     Dates: start: 1997
  8. PHOSEX [Concomitant]
     Indication: BLOOD PHOSPHORUS
     Dosage: UNK
     Route: 048
     Dates: start: 200701
  9. RANITIDINE [Concomitant]
     Indication: PROPHYLAXIS
     Dosage: UNK
     Route: 048
     Dates: start: 200908
  10. ERYTHROPOETIN [Concomitant]
     Indication: NEPHROGENIC ANAEMIA
     Dosage: UNK
     Route: 058
     Dates: start: 199612
  11. IRON [Concomitant]
     Indication: ANAEMIA
     Dosage: UNK
     Route: 042
     Dates: start: 1990

REACTIONS (5)
  - Aspergillus infection [Fatal]
  - Liver transplant [Fatal]
  - Renal transplant [Fatal]
  - Ruptured cerebral aneurysm [Fatal]
  - Bacterial infection [Unknown]
